FAERS Safety Report 6751924-1 (Version None)
Quarter: 2010Q2

REPORT INFORMATION
  Report Type: 
  Country: None (occurrence: None)
  Receive Date: 20100602
  Receipt Date: 20100520
  Transmission Date: 20101027
  Serious: Yes (Hospitalization, Other)
  Sender: FDA-Public Use
  Company Number: GB-PFIZER INC-2010008204

PATIENT
  Age: 61 Year
  Sex: Male

DRUGS (14)
  1. CABASER [Suspect]
     Indication: RESTLESS LEGS SYNDROME
     Dosage: 1 MG, 1X/DAY
     Dates: start: 19991221, end: 20070601
  2. CABASER [Suspect]
     Dosage: 2 MG, 1X/DAY
     Dates: start: 20021201, end: 20030601
  3. CABASER [Suspect]
     Dosage: 3 MG, 1X/DAY
     Dates: start: 20030601, end: 20050201
  4. CABASER [Suspect]
     Dosage: 4 MG, UNK
     Dates: start: 20050201, end: 20061227
  5. CABASER [Suspect]
     Dosage: 5 MG, UNK
     Dates: start: 20061227, end: 20070501
  6. CIPRAMIL [Suspect]
     Dosage: UNK
     Dates: start: 20001001
  7. CLONAZEPAM [Concomitant]
     Indication: RESTLESS LEGS SYNDROME
     Dosage: 500 UG, 2X/DAY
     Dates: start: 20040719, end: 20091209
  8. ATORVASTATIN [Concomitant]
     Indication: HYPERLIPIDAEMIA
     Dosage: 40 MG, 1X/DAY
     Dates: start: 20020529, end: 20030512
  9. ATORVASTATIN [Concomitant]
     Dosage: 80MG DAILY
     Dates: start: 20030626, end: 20090318
  10. GLICLAZIDE [Concomitant]
     Indication: TYPE 2 DIABETES MELLITUS
     Dosage: 80 MG, 2X/DAY
     Dates: start: 20050225, end: 20090428
  11. LISINOPRIL [Concomitant]
     Indication: MICROALBUMINURIA
     Dosage: 5 MG, 1X/DAY
     Dates: start: 20060213, end: 20090401
  12. SINEMET CR [Concomitant]
     Dosage: UNK
     Dates: start: 19940923, end: 20000321
  13. CINNARIZINE [Concomitant]
     Dosage: 15 MG, UNK
     Dates: start: 20000217
  14. PAROXETINE [Concomitant]

REACTIONS (27)
  - AFFECT LABILITY [None]
  - AGITATION [None]
  - AORTIC VALVE DISEASE [None]
  - AORTIC VALVE INCOMPETENCE [None]
  - COUGH [None]
  - DIZZINESS [None]
  - DRUG INEFFECTIVE [None]
  - DYSKINESIA [None]
  - DYSPEPSIA [None]
  - DYSTONIA [None]
  - GAIT DISTURBANCE [None]
  - HEADACHE [None]
  - HYPOAESTHESIA [None]
  - HYPOKINESIA [None]
  - INSOMNIA [None]
  - MEMORY IMPAIRMENT [None]
  - MUSCULAR WEAKNESS [None]
  - NAUSEA [None]
  - ORTHOSTATIC HYPOTENSION [None]
  - PERIPHERAL COLDNESS [None]
  - RESTLESS LEGS SYNDROME [None]
  - SEDATION [None]
  - SINUS ARRHYTHMIA [None]
  - SPEECH DISORDER [None]
  - SYSTOLIC HYPERTENSION [None]
  - TREMOR [None]
  - VERTIGO [None]
